FAERS Safety Report 21409601 (Version 3)
Quarter: 2023Q2

REPORT INFORMATION
  Report Type: Spontaneous
  Country: CA (occurrence: CA)
  Receive Date: 20221004
  Receipt Date: 20230608
  Transmission Date: 20230721
  Serious: Yes (Other)
  Sender: FDA-Public Use
  Company Number: CA-PFIZER INC-202201195421

PATIENT
  Age: 39 Year
  Sex: Female

DRUGS (1)
  1. ABRILADA [Suspect]
     Active Substance: ADALIMUMAB-AFZB
     Indication: Crohn^s disease
     Dosage: 40 MG, EVERY 2 WEEK
     Route: 058
     Dates: start: 20220602

REACTIONS (2)
  - Diarrhoea [Not Recovered/Not Resolved]
  - Frequent bowel movements [Not Recovered/Not Resolved]
